FAERS Safety Report 5057370-3 (Version None)
Quarter: 2006Q3

REPORT INFORMATION
  Report Type: 
  Country: None (occurrence: None)
  Receive Date: 20060721
  Receipt Date: 20050830
  Transmission Date: 20061208
  Serious: No
  Sender: FDA-Public Use
  Company Number: US-GLAXOSMITHKLINE-A0572412A

PATIENT
  Age: 29 Year
  Sex: Male

DRUGS (3)
  1. AVANDIA [Suspect]
     Dates: start: 20050816, end: 20050817
  2. FLONASE [Suspect]
     Dosage: 1SPR THREE TIMES PER DAY
     Route: 048
     Dates: start: 20050701
  3. NO CONCURRENT MEDICATION [Concomitant]

REACTIONS (6)
  - DIARRHOEA [None]
  - HEADACHE [None]
  - INSOMNIA [None]
  - NAUSEA [None]
  - SINUS HEADACHE [None]
  - VOMITING [None]
